FAERS Safety Report 10661788 (Version 2)
Quarter: 2014Q4

REPORT INFORMATION
  Report Type: Spontaneous
  Country: CN (occurrence: CN)
  Receive Date: 20141218
  Receipt Date: 20141218
  Transmission Date: 20150529
  Serious: Yes (Hospitalization)
  Sender: FDA-Public Use
  Company Number: CN-NOVOPROD-422290

PATIENT
  Age: 78 Year
  Sex: Female
  Weight: 58 kg

DRUGS (9)
  1. NOVOLIN R [Suspect]
     Active Substance: INSULIN HUMAN
     Indication: TYPE 2 DIABETES MELLITUS
     Dosage: UNK
     Route: 058
  2. NOVONORM [Suspect]
     Active Substance: REPAGLINIDE
     Dosage: 3MG QD (AT NOON)
     Route: 048
     Dates: start: 20140910
  3. NOVOLIN R [Suspect]
     Active Substance: INSULIN HUMAN
     Dosage: 42 IU, QD (30IU IN THE MORNING, 12IU IN THE EVENING)
     Route: 058
  4. NOVOLIN R [Suspect]
     Active Substance: INSULIN HUMAN
     Dosage: 50 IU, QD (30IU IN THE MORNING, 20 IU IN THE EVENING)
     Route: 058
     Dates: start: 20140910
  5. NOVOLIN R [Suspect]
     Active Substance: INSULIN HUMAN
     Dosage: 40 IU, QD (22IU IN THE MORNING, 18IU IN THE EVENING)
     Route: 058
  6. NOVONORM [Suspect]
     Active Substance: REPAGLINIDE
     Indication: TYPE 2 DIABETES MELLITUS
     Dosage: 2MG  QD (AT NOON)
     Route: 048
     Dates: end: 20140910
  7. GLUCOBAY [Concomitant]
     Active Substance: ACARBOSE
     Indication: PRODUCT USED FOR UNKNOWN INDICATION
     Dosage: 100 MG, QD (50MG AT NOON AND IN THE EVENING)
     Route: 048
     Dates: end: 20140910
  8. NOVOLIN R [Suspect]
     Active Substance: INSULIN HUMAN
     Dosage: 46 IU, QD (28IU IN THE MORNING, 18IU IN THE EVENING)
     Route: 058
     Dates: start: 20140907, end: 20140910
  9. GLUCOBAY [Concomitant]
     Active Substance: ACARBOSE
     Dosage: 50 MG, TID
     Route: 048
     Dates: start: 20140910

REACTIONS (5)
  - Product container issue [Unknown]
  - Retinal haemorrhage [Not Recovered/Not Resolved]
  - Incorrect dose administered [Unknown]
  - Blood glucose fluctuation [Recovered/Resolved]
  - Blood glucose increased [Recovered/Resolved]

NARRATIVE: CASE EVENT DATE: 20140907
